FAERS Safety Report 4429301-8 (Version None)
Quarter: 2004Q3

REPORT INFORMATION
  Report Type: 
  Country: None (occurrence: None)
  Receive Date: 20040818
  Receipt Date: 20040818
  Transmission Date: 20050211
  Serious: Yes (Hospitalization)
  Sender: FDA-Public Use
  Company Number: None

PATIENT
  Sex: Female
  Weight: 70 kg

DRUGS (4)
  1. PREVACID [Suspect]
     Dosage: 15 MG DAILY ORAL
     Route: 048
     Dates: start: 20040811, end: 20040814
  2. LEVOTHYROXINE SODIUM [Concomitant]
  3. HYDROCORTISONE [Concomitant]
  4. HUMAN INSULIN REGULAR SLIDING SCALE [Concomitant]

REACTIONS (1)
  - LEUKOPENIA [None]
